FAERS Safety Report 10070135 (Version 1)
Quarter: 2014Q2

REPORT INFORMATION
  Report Type: Spontaneous
  Country: FR (occurrence: FR)
  Receive Date: 20140410
  Receipt Date: 20140410
  Transmission Date: 20141212
  Serious: Yes (Other)
  Sender: FDA-Public Use
  Company Number: FR-ASTRAZENECA-2014SE23418

PATIENT
  Age: 79 Year
  Sex: Female

DRUGS (7)
  1. FLODIL [Suspect]
     Indication: HYPERTENSION
     Route: 048
  2. ZESTORETIC [Suspect]
     Dosage: 20 MG / 12.5 MG 1 DF EVERY DAY LONG LASTING
     Route: 048
  3. LEVOTHYROX [Suspect]
     Route: 048
  4. ZOCOR [Suspect]
     Indication: DYSLIPIDAEMIA
     Route: 048
  5. KARDEGIC [Suspect]
     Route: 048
     Dates: end: 20140301
  6. MODAMIDE [Suspect]
     Dosage: 5 MG 5 TIMES A WEEK LONG LASTING
     Route: 048
  7. FLECAINE [Suspect]
     Indication: ARRHYTHMIA
     Route: 048
     Dates: start: 2004, end: 201304

REACTIONS (1)
  - Peripheral sensory neuropathy [Not Recovered/Not Resolved]
